FAERS Safety Report 21615770 (Version 1)
Quarter: 2022Q4

REPORT INFORMATION
  Report Type: Spontaneous
  Country: RO (occurrence: RO)
  Receive Date: 20221118
  Receipt Date: 20221118
  Transmission Date: 20230113
  Serious: Yes (Other)
  Sender: FDA-Public Use
  Company Number: RO-TAKEDA-2022TUS085051

PATIENT

DRUGS (4)
  1. ELAPRASE [Suspect]
     Active Substance: IDURSULFASE
     Indication: Product used for unknown indication
     Dosage: 3 DOSAGE FORM, 1/WEEK
     Route: 065
     Dates: start: 20130702
  2. ELAPRASE [Suspect]
     Active Substance: IDURSULFASE
     Dosage: 4 DOSAGE FORM, 1/WEEK
     Route: 065
  3. ELAPRASE [Suspect]
     Active Substance: IDURSULFASE
     Dosage: 3 DOSAGE FORM, 1/WEEK
     Route: 065
  4. ELAPRASE [Suspect]
     Active Substance: IDURSULFASE
     Dosage: 3 DOSAGE FORM, QD
     Route: 065
     Dates: start: 20221031

REACTIONS (14)
  - Tracheomalacia [Unknown]
  - Respiratory rate increased [Unknown]
  - Insomnia [Unknown]
  - Confusional state [Unknown]
  - Dysstasia [Unknown]
  - Balance disorder [Unknown]
  - Granuloma [Unknown]
  - Pulmonary granuloma [Unknown]
  - Cognitive disorder [Unknown]
  - Movement disorder [Unknown]
  - Musculoskeletal deformity [Unknown]
  - Cardiac valve disease [Unknown]
  - Kyphosis [Unknown]
  - Scoliosis [Unknown]

NARRATIVE: CASE EVENT DATE: 20130101
